FAERS Safety Report 25710828 (Version 1)
Quarter: 2025Q3

REPORT INFORMATION
  Report Type: Spontaneous
  Country: US (occurrence: US)
  Receive Date: 20250821
  Receipt Date: 20250821
  Transmission Date: 20251021
  Serious: No
  Sender: SANOFI AVENTIS
  Company Number: US-SA-2025SA248155

PATIENT
  Age: 26 Year
  Sex: Female

DRUGS (4)
  1. DUPIXENT [Suspect]
     Active Substance: DUPILUMAB
     Indication: Dermatitis atopic
     Route: 058
     Dates: start: 20240611, end: 202410
  2. HYDROCORTISONE [Concomitant]
     Active Substance: HYDROCORTISONE
  3. TACROLIMUS [Concomitant]
     Active Substance: TACROLIMUS
  4. ZYRTEC [Concomitant]
     Active Substance: CETIRIZINE HYDROCHLORIDE

REACTIONS (7)
  - Dermatitis atopic [Unknown]
  - Rebound atopic dermatitis [Unknown]
  - Acne [Unknown]
  - Erythema [Unknown]
  - Dry skin [Unknown]
  - Skin tightness [Unknown]
  - Product dose omission in error [Unknown]

NARRATIVE: CASE EVENT DATE: 20241001
